FAERS Safety Report 23914929 (Version 1)
Quarter: 2024Q2

REPORT INFORMATION
  Report Type: Spontaneous
  Country: US (occurrence: US)
  Receive Date: 20240529
  Receipt Date: 20240529
  Transmission Date: 20240716
  Serious: No
  Sender: FDA-Public Use
  Company Number: US-PERRIGO-24US001226

PATIENT
  Sex: Male
  Weight: 99.773 kg

DRUGS (1)
  1. MINOXIDIL [Suspect]
     Active Substance: MINOXIDIL
     Indication: Alopecia
     Dosage: HALF CAPFUL, BID
     Route: 061
     Dates: end: 202309

REACTIONS (1)
  - Application site pruritus [Recovered/Resolved]
